FAERS Safety Report 24576662 (Version 1)
Quarter: 2024Q4

REPORT INFORMATION
  Report Type: Spontaneous
  Country: US (occurrence: None)
  Receive Date: 20241103
  Receipt Date: 20241103
  Transmission Date: 20250115
  Serious: Yes (Other)
  Sender: Public
  Company Number: None

PATIENT
  Age: 68 Year
  Sex: Female
  Weight: 99 kg

DRUGS (19)
  1. HERCEPTIN [Suspect]
     Active Substance: TRASTUZUMAB
     Indication: Breast cancer
     Dosage: OTHER ROUTE : PORT;?
     Route: 050
     Dates: start: 20200207, end: 20210201
  2. HERCEPTIN [Suspect]
     Active Substance: TRASTUZUMAB
     Indication: Prophylaxis
  3. PROZAC [Concomitant]
     Active Substance: FLUOXETINE HYDROCHLORIDE
  4. BIOTIN [Concomitant]
     Active Substance: BIOTIN
  5. calcuim-magnesium [Concomitant]
  6. UNSPECIFIED INGREDIENT [Concomitant]
     Active Substance: UNSPECIFIED INGREDIENT
  7. b12 [Concomitant]
  8. GLUCOSAMINE SULFATE [Concomitant]
     Active Substance: GLUCOSAMINE SULFATE
  9. OMEGA-3 ACIDS [Concomitant]
     Active Substance: OMEGA-3 FATTY ACIDS
  10. POTASSIUM [Concomitant]
     Active Substance: POTASSIUM
  11. PYRIDOXINE HYDROCHLORIDE [Concomitant]
     Active Substance: PYRIDOXINE HYDROCHLORIDE
  12. B1 [Concomitant]
  13. HERBALS\TURMERIC [Concomitant]
     Active Substance: HERBALS\TURMERIC
  14. VITAMIN D3 [Concomitant]
     Active Substance: CHOLECALCIFEROL
  15. ZINC [Concomitant]
     Active Substance: ZINC
  16. pro-biotic [Concomitant]
  17. CHROMIUM [Concomitant]
     Active Substance: CHROMIC CHLORIDE\CHROMIUM
  18. COLLAGEN [Concomitant]
     Active Substance: COLLAGEN
  19. VITAMIN C [Concomitant]
     Active Substance: ASCORBIC ACID

REACTIONS (13)
  - Illiteracy [None]
  - Learning disorder [None]
  - Memory impairment [None]
  - Aphasia [None]
  - Thinking abnormal [None]
  - Dehydration [None]
  - Endocrine disorder [None]
  - Cerebral disorder [None]
  - Product use issue [None]
  - Depression [None]
  - Obsessive-compulsive disorder [None]
  - Anxiety [None]
  - Panic attack [None]

NARRATIVE: CASE EVENT DATE: 20201203
